FAERS Safety Report 14344284 (Version 2)
Quarter: 2018Q1

REPORT INFORMATION
  Report Type: Spontaneous
  Country: ES (occurrence: ES)
  Receive Date: 20180102
  Receipt Date: 20180227
  Transmission Date: 20180509
  Serious: Yes (Hospitalization)
  Sender: FDA-Public Use
  Company Number: ES-TAKEDA-2017MPI009121

PATIENT
  Age: 81 Year
  Sex: Female

DRUGS (4)
  1. DEXAMETHASONE. [Suspect]
     Active Substance: DEXAMETHASONE
     Dosage: UNK
     Route: 065
  2. DEXAMETHASONE. [Suspect]
     Active Substance: DEXAMETHASONE
     Indication: PLASMA CELL MYELOMA
     Dosage: UNK
     Route: 065
  3. VELCADE [Suspect]
     Active Substance: BORTEZOMIB
     Dosage: UNK
     Route: 065
  4. VELCADE [Suspect]
     Active Substance: BORTEZOMIB
     Indication: PLASMA CELL MYELOMA
     Dosage: UNK
     Route: 065

REACTIONS (9)
  - Somnolence [Recovered/Resolved]
  - Hyponatraemia [Recovered/Resolved]
  - Inappropriate antidiuretic hormone secretion [Recovered/Resolved]
  - Myoclonus [Recovered/Resolved]
  - Urine osmolarity increased [Recovered/Resolved]
  - Urine sodium increased [Recovered/Resolved]
  - Lethargy [Recovered/Resolved]
  - Asthenia [Recovered/Resolved]
  - Disorientation [Recovered/Resolved]
